FAERS Safety Report 19638977 (Version 1)
Quarter: 2021Q3

REPORT INFORMATION
  Report Type: Spontaneous
  Country: US (occurrence: US)
  Receive Date: 20210729
  Receipt Date: 20210729
  Transmission Date: 20211014
  Serious: No
  Sender: FDA-Public Use
  Company Number: US-SA-2021SA248073

PATIENT
  Age: 54 Year
  Sex: Female

DRUGS (1)
  1. DUPIXENT [Suspect]
     Active Substance: DUPILUMAB
     Indication: DERMATITIS ATOPIC
     Dosage: 300 MG; FREQUENCY?OTHER
     Route: 058
     Dates: start: 201810

REACTIONS (2)
  - Capillary fragility [Not Recovered/Not Resolved]
  - Condition aggravated [Not Recovered/Not Resolved]
